FAERS Safety Report 12321449 (Version 1)
Quarter: 2016Q2

REPORT INFORMATION
  Report Type: Spontaneous
  Country: US (occurrence: US)
  Receive Date: 20160502
  Receipt Date: 20160502
  Transmission Date: 20160815
  Serious: Yes (Other)
  Sender: FDA-Public Use
  Company Number: US-BAYER-2016-075958

PATIENT
  Age: 74 Year
  Sex: Female
  Weight: 73.48 kg

DRUGS (5)
  1. CALCIUM +VIT D [Concomitant]
     Active Substance: CALCIUM\VITAMIN D
     Indication: BONE DISORDER
     Dosage: 600MG AND 800MG, QD
  2. INSULIN [Concomitant]
     Active Substance: INSULIN NOS
     Indication: TYPE 1 DIABETES MELLITUS
     Dosage: SLIDING SCALE DOSE INJECTION
     Dates: start: 1970
  3. CENTRUM SILVER [Concomitant]
     Active Substance: MINERALS\VITAMINS
     Dosage: UNK, QD
  4. CIPRO [Suspect]
     Active Substance: CIPROFLOXACIN HYDROCHLORIDE
     Dosage: UNK
  5. AMLODIPIN [Suspect]
     Active Substance: AMLODIPINE BESYLATE
     Indication: BLOOD PRESSURE ABNORMAL
     Dosage: 5 MG, QD

REACTIONS (3)
  - Drug hypersensitivity [None]
  - Muscle injury [Recovered/Resolved]
  - Gait disturbance [Recovered/Resolved]
